FAERS Safety Report 13506978 (Version 2)
Quarter: 2017Q2

REPORT INFORMATION
  Report Type: Spontaneous
  Country: US (occurrence: US)
  Receive Date: 20170503
  Receipt Date: 20170616
  Transmission Date: 20170830
  Serious: Yes (Other)
  Sender: FDA-Public Use
  Company Number: US-AMGEN-USASP2017063998

PATIENT
  Age: 62 Year
  Sex: Female

DRUGS (1)
  1. PROLIA [Suspect]
     Active Substance: DENOSUMAB
     Indication: OSTEOPOROSIS POSTMENOPAUSAL
     Dosage: 60 MG, UNK
     Route: 065
     Dates: start: 201510, end: 201604

REACTIONS (5)
  - Dyspnoea [Recovered/Resolved]
  - Increased upper airway secretion [Unknown]
  - Throat tightness [Unknown]
  - Toothache [Unknown]
  - Neck pain [Unknown]

NARRATIVE: CASE EVENT DATE: 201511
